FAERS Safety Report 25020153 (Version 9)
Quarter: 2025Q4

REPORT INFORMATION
  Report Type: Report from Study
  Country: US (occurrence: US)
  Receive Date: 20250227
  Receipt Date: 20251231
  Transmission Date: 20260117
  Serious: No
  Sender: PFIZER
  Company Number: US-PFIZER INC-202500038148

PATIENT
  Age: 87 Year
  Sex: Female
  Weight: 58.2 kg

DRUGS (3)
  1. IBRANCE [Suspect]
     Active Substance: PALBOCICLIB
     Indication: Breast cancer female
     Dosage: 75 MG, CYCLIC (1 TABLET ORALLY DAILY 1-21 OF EACH 28 DAY CYCLE)
     Route: 048
     Dates: start: 202407
  2. IBRANCE [Suspect]
     Active Substance: PALBOCICLIB
     Dosage: 75 MG, CYCLIC (DAILY FOR 3 WEEKS FOLLOWED BY A 2 WEEK BREAK EVERY 35 DAYS)(3 WEEKS ON 2 WEEKS OFF)
     Route: 048
  3. FULVESTRANT [Concomitant]
     Active Substance: FULVESTRANT
     Dosage: Q 28 D (EVERY 28 DAYS)

REACTIONS (8)
  - Anxiety [Unknown]
  - Pulmonary mass [Unknown]
  - Iron deficiency [Unknown]
  - Fatigue [Not Recovered/Not Resolved]
  - Nausea [Unknown]
  - Decreased appetite [Unknown]
  - Anaemia [Unknown]
  - Off label use [Unknown]
